FAERS Safety Report 9994690 (Version 1)
Quarter: 2014Q1

REPORT INFORMATION
  Report Type: Spontaneous
  Country: US (occurrence: None)
  Receive Date: 20140306
  Receipt Date: 20140306
  Transmission Date: 20141002
  Serious: Yes (Other)
  Sender: FDA-Public Use
  Company Number: 001677940A

PATIENT
  Age: 17 Year
  Sex: Male

DRUGS (1)
  1. X-OUT CLEANSING BODY BAR [Suspect]
     Indication: ACNE
     Dosage: TWICE DAILY DERMAL
     Dates: start: 20131120, end: 20131129

REACTIONS (3)
  - Erythema [None]
  - Urticaria [None]
  - Hypersensitivity [None]
